FAERS Safety Report 6619488-0 (Version None)
Quarter: 2010Q1

REPORT INFORMATION
  Report Type: 
  Country: None (occurrence: None)
  Receive Date: 20100304
  Receipt Date: 20100217
  Transmission Date: 20100710
  Serious: Yes (Hospitalization)
  Sender: FDA-Public Use
  Company Number: 2010000580

PATIENT
  Age: 56 Year
  Sex: Female
  Weight: 51.3 kg

DRUGS (2)
  1. ERLOTINIB                         (ERLOTINIB) [Suspect]
     Indication: ADENOCARCINOMA PANCREAS
     Dosage: (100 MG,QD), ORAL
     Route: 048
     Dates: start: 20100125, end: 20100205
  2. GEMCITABINE [Suspect]
     Indication: ADENOCARCINOMA PANCREAS
     Dosage: (1000 MG/M2, DAYS 1, 8, 15), INTRAVENOUS
     Route: 042
     Dates: start: 20100125

REACTIONS (9)
  - DIARRHOEA [None]
  - DYSPNOEA [None]
  - HYPOXIA [None]
  - INFECTION [None]
  - NAUSEA [None]
  - PLEURAL EFFUSION [None]
  - PNEUMONIA [None]
  - RESPIRATORY DISTRESS [None]
  - VOMITING [None]
